FAERS Safety Report 14402107 (Version 2)
Quarter: 2018Q1

REPORT INFORMATION
  Report Type: Report from Study
  Country: DE (occurrence: DE)
  Receive Date: 20180117
  Receipt Date: 20180228
  Transmission Date: 20180509
  Serious: Yes (Death, Hospitalization)
  Sender: FDA-Public Use
  Company Number: DE-TESARO, INC.-DE-2017TSO03262

PATIENT
  Age: 59 Year
  Sex: Female
  Weight: 54.5 kg

DRUGS (2)
  1. NIRAPARIB [Suspect]
     Active Substance: NIRAPARIB
     Dosage: 200 MG, QD
     Route: 048
     Dates: start: 20170811, end: 20171010
  2. NIRAPARIB [Suspect]
     Active Substance: NIRAPARIB
     Indication: OVARIAN CANCER
     Dosage: 300 MG, QD
     Route: 048
     Dates: start: 20170530, end: 20170731

REACTIONS (1)
  - Metastases to central nervous system [Recovered/Resolved]

NARRATIVE: CASE EVENT DATE: 20171011
